FAERS Safety Report 10593793 (Version 6)
Quarter: 2015Q1

REPORT INFORMATION
  Report Type: Spontaneous
  Country: US (occurrence: US)
  Receive Date: 20141119
  Receipt Date: 20150114
  Transmission Date: 20150720
  Serious: Yes (Hospitalization)
  Sender: FDA-Public Use
  Company Number: US-UNITED THERAPEUTICS-UNT-2014-010562

PATIENT
  Age: 62 Year
  Sex: Female
  Weight: 73.92 kg

DRUGS (3)
  1. OPSUMIT [Concomitant]
     Active Substance: MACITENTAN
     Indication: PRODUCT USED FOR UNKNOWN INDICATION
  2. REMODULIN [Suspect]
     Active Substance: TREPROSTINIL
     Dosage: 0.060 ?G/KG, CONTINUING
     Route: 041
     Dates: start: 20091214
  3. REMODULIN [Suspect]
     Active Substance: TREPROSTINIL
     Indication: PULMONARY ARTERIAL HYPERTENSION
     Dosage: 0.060 ?G/KG, CONTINUING
     Route: 041
     Dates: start: 20091214

REACTIONS (5)
  - Atrial fibrillation [Recovered/Resolved]
  - Bacteraemia [Recovered/Resolved]
  - Hypoxia [Unknown]
  - Pneumonia [Recovered/Resolved]
  - Oedema [Unknown]

NARRATIVE: CASE EVENT DATE: 2014
